FAERS Safety Report 5582161-4 (Version None)
Quarter: 2007Q4

REPORT INFORMATION
  Report Type: 
  Country: None (occurrence: None)
  Receive Date: 20071130
  Receipt Date: 20070810
  Transmission Date: 20080405
  Serious: No
  Sender: FDA-Public Use
  Company Number: US200708002603

PATIENT
  Age: 59 Year
  Sex: Male

DRUGS (2)
  1. BYETTA [Suspect]
     Indication: INSULIN-REQUIRING TYPE II DIABETES MELLITUS
     Dosage: UNK
     Dates: start: 20060101, end: 20070301
  2. INSULIN [Concomitant]

REACTIONS (1)
  - BLOOD GLUCOSE INCREASED [None]
